FAERS Safety Report 25463730 (Version 1)
Quarter: 2025Q2

REPORT INFORMATION
  Report Type: Spontaneous
  Country: US (occurrence: US)
  Receive Date: 20250621
  Receipt Date: 20250621
  Transmission Date: 20250716
  Serious: No
  Sender: AUROBINDO
  Company Number: US-AUROBINDO-AUR-APL-2024-045150

PATIENT
  Sex: Male

DRUGS (1)
  1. AZELASTINE HYDROCHLORIDE [Suspect]
     Active Substance: AZELASTINE HYDROCHLORIDE
     Indication: Eustachian tube dysfunction
     Route: 065
     Dates: start: 2023

REACTIONS (7)
  - Drug ineffective [Unknown]
  - Device leakage [Unknown]
  - Device colour issue [Unknown]
  - Device issue [Unknown]
  - Product storage error [Unknown]
  - Product container issue [Unknown]
  - Product use in unapproved indication [Unknown]

NARRATIVE: CASE EVENT DATE: 20240301
